FAERS Safety Report 9617491 (Version 3)
Quarter: 2014Q1

REPORT INFORMATION
  Report Type: Spontaneous
  Country: CA (occurrence: CA)
  Receive Date: 20131011
  Receipt Date: 20140113
  Transmission Date: 20141002
  Serious: Yes (Death, Hospitalization)
  Sender: FDA-Public Use
  Company Number: CA-GLAXOSMITHKLINE-A1044178A

PATIENT
  Age: 31 Year
  Sex: Female

DRUGS (1)
  1. MEKINIST [Suspect]
     Indication: METASTATIC MALIGNANT MELANOMA
     Dosage: 2MG PER DAY
     Route: 065

REACTIONS (5)
  - Rash [Unknown]
  - Viral infection [Unknown]
  - Varicella [Unknown]
  - Herpes zoster disseminated [Recovering/Resolving]
  - Death [Fatal]
